FAERS Safety Report 9765720 (Version 1)
Quarter: 2013Q4

REPORT INFORMATION
  Report Type: Spontaneous
  Country: US (occurrence: US)
  Receive Date: 20131217
  Receipt Date: 20131217
  Transmission Date: 20140711
  Serious: No
  Sender: FDA-Public Use
  Company Number: US-BIOGENIDEC-2013BI113779

PATIENT
  Age: 39 Year
  Sex: Female

DRUGS (1)
  1. TECFIDERA [Suspect]
     Indication: MULTIPLE SCLEROSIS
     Dates: start: 20130801, end: 20130910

REACTIONS (6)
  - Malaise [Recovered/Resolved]
  - Sensory disturbance [Unknown]
  - Aphagia [Unknown]
  - Weight decreased [Unknown]
  - Scleroderma [Unknown]
  - Dyspepsia [Unknown]
